FAERS Safety Report 7505543-X (Version None)
Quarter: 2011Q2

REPORT INFORMATION
  Report Type: 
  Country: None (occurrence: None)
  Receive Date: 20110526
  Receipt Date: 20110516
  Transmission Date: 20111010
  Serious: Yes (Other)
  Sender: FDA-Public Use
  Company Number: US-AMGEN-USASP2011025392

PATIENT
  Sex: Female

DRUGS (1)
  1. ENBREL [Suspect]
     Indication: JUVENILE ARTHRITIS
     Dosage: 25 MG, QWK
     Dates: start: 20100601

REACTIONS (7)
  - DEAFNESS [None]
  - ARTHRALGIA [None]
  - ANXIETY [None]
  - PAIN [None]
  - OSTEITIS [None]
  - JOINT SWELLING [None]
  - THERAPEUTIC RESPONSE DECREASED [None]
